FAERS Safety Report 12555708 (Version 1)
Quarter: 2016Q3

REPORT INFORMATION
  Report Type: Spontaneous
  Country: US (occurrence: US)
  Receive Date: 20160714
  Receipt Date: 20160714
  Transmission Date: 20161109
  Serious: No
  Sender: FDA-Public Use
  Company Number: US-PFIZER INC-2016312035

PATIENT
  Age: 36 Year

DRUGS (5)
  1. GABAPENTIN. [Suspect]
     Active Substance: GABAPENTIN
  2. TEGRETOL [Suspect]
     Active Substance: CARBAMAZEPINE
  3. NORTRIPTYLINE [Suspect]
     Active Substance: NORTRIPTYLINE
  4. GUAIFENESIN. [Suspect]
     Active Substance: GUAIFENESIN
  5. TRAZODONE [Suspect]
     Active Substance: TRAZODONE HYDROCHLORIDE

REACTIONS (1)
  - Drug hypersensitivity [Unknown]
